FAERS Safety Report 5213439-1 (Version None)
Quarter: 2007Q1

REPORT INFORMATION
  Report Type: 
  Country: None (occurrence: None)
  Receive Date: 20070119
  Receipt Date: 20070115
  Transmission Date: 20070707
  Serious: Yes (Life-Threatening)
  Sender: FDA-Public Use
  Company Number: US-JNJFOC-20070103598

PATIENT
  Age: 86 Year
  Sex: Female

DRUGS (4)
  1. REOPRO [Suspect]
     Indication: CORONARY ARTERIAL STENT INSERTION
     Route: 042
  2. REOPRO [Suspect]
     Indication: MYOCARDIAL INFARCTION
     Route: 042
  3. PLAVIX [Concomitant]
     Indication: CORONARY ARTERIAL STENT INSERTION
  4. PLAVIX [Concomitant]
     Indication: MYOCARDIAL INFARCTION

REACTIONS (2)
  - CARDIAC PACEMAKER INSERTION [None]
  - HAEMORRHAGE [None]
